FAERS Safety Report 5758654-3 (Version None)
Quarter: 2008Q2

REPORT INFORMATION
  Report Type: 
  Country: None (occurrence: None)
  Receive Date: 20080603
  Receipt Date: 20080603
  Transmission Date: 20081010
  Serious: Yes (Hospitalization, Other)
  Sender: FDA-Public Use
  Company Number: None

PATIENT
  Age: 47 Year
  Sex: Female
  Weight: 77.5651 kg

DRUGS (1)
  1. CHANTIX [Suspect]
     Indication: EX-SMOKER
     Dates: start: 20061101, end: 20061225

REACTIONS (10)
  - ARTHRALGIA [None]
  - CHEST PAIN [None]
  - DEPRESSION [None]
  - DYSPNOEA [None]
  - GAIT DISTURBANCE [None]
  - JOINT SWELLING [None]
  - MYALGIA [None]
  - OEDEMA [None]
  - OEDEMA PERIPHERAL [None]
  - WEIGHT INCREASED [None]
